FAERS Safety Report 15084764 (Version 1)
Quarter: 2018Q2

REPORT INFORMATION
  Report Type: Spontaneous
  Country: US (occurrence: US)
  Receive Date: 20180608
  Receipt Date: 20180608
  Transmission Date: 20180711
  Serious: Yes (Other)
  Sender: FDA-Public Use
  Company Number: None

PATIENT
  Age: 63 Year
  Sex: Female
  Weight: 53.55 kg

DRUGS (1)
  1. FILGRASTIM-SNDZ [Suspect]
     Active Substance: FILGRASTIM-SNDZ
     Indication: TRANSPLANT
     Route: 058
     Dates: start: 20180530, end: 20180605

REACTIONS (4)
  - Peritoneal haemorrhage [None]
  - Splenic rupture [None]
  - Splenic haemorrhage [None]
  - Abdominal pain [None]

NARRATIVE: CASE EVENT DATE: 20180607
